FAERS Safety Report 18253933 (Version 1)
Quarter: 2020Q3

REPORT INFORMATION
  Report Type: Spontaneous
  Country: US (occurrence: US)
  Receive Date: 20200910
  Receipt Date: 20200910
  Transmission Date: 20201103
  Serious: No
  Sender: FDA-Public Use
  Company Number: US-BAYER-2020-191213

PATIENT
  Age: 68 Year
  Sex: Male

DRUGS (1)
  1. NEXAVAR [Suspect]
     Active Substance: SORAFENIB
     Indication: HEPATIC CANCER
     Dosage: UNK UNK, TID

REACTIONS (3)
  - Scrotal dermatitis [Not Recovered/Not Resolved]
  - Off label use [None]
  - Acne [Not Recovered/Not Resolved]

NARRATIVE: CASE EVENT DATE: 202008
